FAERS Safety Report 7591479 (Version 4)
Quarter: 2013Q1

REPORT INFORMATION
  Report Type: Spontaneous
  Country: US (occurrence: US)
  Receive Date: 20100917
  Receipt Date: 20130218
  Transmission Date: 20140127
  Serious: Yes (Other)
  Sender: FDA-Public Use
  Company Number: US-ASTRAZENECA-2009UW19646

PATIENT
  Age: 54 Year
  Sex: Female
  Weight: 77.1 kg

DRUGS (14)
  1. SEROQUEL [Suspect]
     Indication: SLEEP DISORDER
     Route: 048
     Dates: start: 2008
  2. SEROQUEL [Suspect]
     Indication: DEPRESSION
     Route: 048
     Dates: start: 2008
  3. SEROQUEL [Suspect]
     Indication: SLEEP DISORDER
     Route: 048
     Dates: start: 20081201
  4. SEROQUEL [Suspect]
     Indication: DEPRESSION
     Route: 048
     Dates: start: 20081201
  5. SEROQUEL [Suspect]
     Indication: SLEEP DISORDER
     Route: 048
  6. SEROQUEL [Suspect]
     Indication: DEPRESSION
     Route: 048
  7. SEROQUEL [Suspect]
     Indication: SLEEP DISORDER
     Route: 048
  8. SEROQUEL [Suspect]
     Indication: DEPRESSION
     Route: 048
  9. SEROQUEL [Suspect]
     Indication: SLEEP DISORDER
     Dosage: GENERIC
     Route: 048
  10. SEROQUEL [Suspect]
     Indication: DEPRESSION
     Dosage: GENERIC
     Route: 048
  11. LISINOPRIL [Concomitant]
  12. VICODIN [Concomitant]
     Indication: PAIN
  13. XEXEX [Concomitant]
  14. ESTRASE [Concomitant]
     Indication: OESTROGEN REPLACEMENT THERAPY

REACTIONS (24)
  - Suicidal ideation [Recovered/Resolved]
  - Depression [Recovered/Resolved]
  - Crying [Recovered/Resolved]
  - Tearfulness [Recovered/Resolved]
  - Confusional state [Unknown]
  - Amnesia [Unknown]
  - Aphagia [Unknown]
  - Activities of daily living impaired [Unknown]
  - Poor quality sleep [Unknown]
  - Social avoidant behaviour [Unknown]
  - Disorientation [Unknown]
  - Abnormal behaviour [Unknown]
  - Nervousness [Unknown]
  - Anxiety [Unknown]
  - Insomnia [Unknown]
  - Palpitations [Unknown]
  - Fatigue [Unknown]
  - Dizziness [Unknown]
  - Nightmare [Unknown]
  - Somnolence [Unknown]
  - Lethargy [Unknown]
  - Drug ineffective [Unknown]
  - Off label use [Unknown]
  - Drug dose omission [Unknown]
